FAERS Safety Report 5146319-0 (Version None)
Quarter: 2006Q4

REPORT INFORMATION
  Report Type: 
  Country: None (occurrence: None)
  Receive Date: 20061102
  Receipt Date: 20061023
  Transmission Date: 20070319
  Serious: Yes (Other)
  Sender: FDA-Public Use
  Company Number: 2006131238

PATIENT

DRUGS (1)
  1. DEPO-MEDROL [Suspect]
     Dosage: INTRAVENOUS
     Route: 042
     Dates: start: 20061023

REACTIONS (1)
  - INCORRECT ROUTE OF DRUG ADMINISTRATION [None]
